FAERS Safety Report 10766082 (Version 1)
Quarter: 2015Q1

REPORT INFORMATION
  Report Type: Spontaneous
  Country: US (occurrence: None)
  Receive Date: 20150204
  Receipt Date: 20150204
  Transmission Date: 20150721
  Serious: Yes (Hospitalization)
  Sender: FDA-Public Use
  Company Number: None

PATIENT
  Age: 94 Year
  Sex: Male
  Weight: 70.5 kg

DRUGS (9)
  1. ASA [Concomitant]
     Active Substance: ASPIRIN
  2. FOLVITE [Concomitant]
     Active Substance: FOLIC ACID
  3. B COMPLEX/FOLIC ACID [Concomitant]
  4. AGGRENOX [Concomitant]
     Active Substance: ASPIRIN\DIPYRIDAMOLE
  5. TAMSULOSIN [Concomitant]
     Active Substance: TAMSULOSIN
  6. SENNA [Concomitant]
     Active Substance: SENNA LEAF\SENNOSIDES\SENNOSIDES A AND B
  7. DOXYCYCLINE. [Suspect]
     Active Substance: DOXYCYCLINE
     Indication: STAPHYLOCOCCAL INFECTION
     Route: 048
  8. DOXYCYCLINE. [Suspect]
     Active Substance: DOXYCYCLINE
     Indication: URINARY TRACT INFECTION
     Route: 048
  9. PROAMATINE [Concomitant]
     Active Substance: MIDODRINE HYDROCHLORIDE

REACTIONS (5)
  - Acute kidney injury [None]
  - Dehydration [None]
  - Rash [None]
  - Tubulointerstitial nephritis [None]
  - Petechiae [None]

NARRATIVE: CASE EVENT DATE: 20140708
